FAERS Safety Report 16861476 (Version 3)
Quarter: 2022Q4

REPORT INFORMATION
  Report Type: Report from Study
  Country: GB (occurrence: GB)
  Receive Date: 20190927
  Receipt Date: 20221208
  Transmission Date: 20230112
  Serious: Yes (Other)
  Sender: FDA-Public Use
  Company Number: GB-ROCHE-1753928

PATIENT
  Age: 49 Year
  Sex: Female

DRUGS (39)
  1. TRASTUZUMAB [Suspect]
     Active Substance: TRASTUZUMAB
     Indication: Breast cancer metastatic
     Dosage: 525 MILLIGRAM, LOADING DOSE
     Route: 042
     Dates: start: 20150904, end: 20150904
  2. TRASTUZUMAB [Suspect]
     Active Substance: TRASTUZUMAB
     Dosage: 399 MILLIGRAM, 3XW, MAINTENANCE DOSE
     Route: 042
     Dates: start: 20150925
  3. TRASTUZUMAB [Suspect]
     Active Substance: TRASTUZUMAB
     Dosage: 399 MILLIGRAM, 3XW, MAINTENANCE DOSE
     Route: 042
     Dates: start: 20150925, end: 20160916
  4. TAMOXIFEN [Suspect]
     Active Substance: TAMOXIFEN
     Indication: Breast cancer metastatic
     Dosage: 20 MILLIGRAM, QD
     Route: 048
     Dates: start: 20160420
  5. PERTUZUMAB [Suspect]
     Active Substance: PERTUZUMAB
     Indication: Breast cancer metastatic
     Dosage: 840 MILLIGRAM, LOADING DOSE
     Route: 042
     Dates: start: 20150904
  6. PERTUZUMAB [Suspect]
     Active Substance: PERTUZUMAB
     Dosage: 420 MILLIGRAM, 3XW, MAINTENANCE DOSE
     Route: 042
     Dates: start: 20150925
  7. PERTUZUMAB [Suspect]
     Active Substance: PERTUZUMAB
     Dosage: 840 MILLIGRAM (LOADING DOSE)
     Route: 042
     Dates: start: 20150904, end: 20150904
  8. PERTUZUMAB [Suspect]
     Active Substance: PERTUZUMAB
     Dosage: 420 MILLIGRAM, 3XW(MAINTENANCE DOSE )
     Route: 042
     Dates: start: 20150925, end: 20160916
  9. DOCETAXEL [Suspect]
     Active Substance: DOCETAXEL
     Indication: Breast cancer metastatic
     Dosage: 100 MILLIGRAM, 3XW
     Route: 042
     Dates: start: 20151113, end: 20160104
  10. DOCETAXEL [Suspect]
     Active Substance: DOCETAXEL
     Dosage: 130 MILLIGRAM, 3XW, DOSE MODIFIED
     Route: 042
     Dates: start: 20150904, end: 20151016
  11. TERBUTALINE [Concomitant]
     Active Substance: TERBUTALINE
     Dosage: 500 MICROGRAM
     Route: 065
  12. SENOKOT [Concomitant]
     Active Substance: SENNOSIDES
     Dosage: UNK, 3XMONTHS
     Route: 048
     Dates: start: 201512, end: 201603
  13. SENOKOT [Concomitant]
     Active Substance: SENNOSIDES
     Dosage: 1 DOSAGE FORM(1 TABLET)
     Route: 048
     Dates: start: 201512, end: 201603
  14. SCHERIPROCT NEO [Concomitant]
     Dosage: 2 UNKNOWN UNIT, QD, 1 APPLICATION
     Route: 061
     Dates: start: 201512
  15. ZOLEDRONIC ACID [Concomitant]
     Active Substance: ZOLEDRONIC ACID
     Indication: Metastases to bone
     Dosage: 4 MILLIGRAM, 3XW
     Route: 042
     Dates: start: 20160129
  16. ZOLEDRONIC ACID [Concomitant]
     Active Substance: ZOLEDRONIC ACID
     Dosage: 100 MILLIGRAM
     Route: 042
     Dates: start: 20170322, end: 20170503
  17. ZOLEDRONIC ACID [Concomitant]
     Active Substance: ZOLEDRONIC ACID
     Dosage: 100 MILLIGRAM
     Route: 042
     Dates: start: 20170503
  18. DOCUSATE SODIUM [Concomitant]
     Active Substance: DOCUSATE SODIUM
     Indication: Constipation
     Dosage: 100 MILLIGRAM
     Route: 048
  19. INSTILLAGEL [Concomitant]
     Active Substance: CHLORHEXIDINE GLUCONATE\LIDOCAINE HYDROCHLORIDE
     Dosage: 6 MILLILITER
     Route: 058
     Dates: start: 20160426
  20. LANSOPRAZOLE [Concomitant]
     Active Substance: LANSOPRAZOLE
     Dosage: 15 MILLIGRAM, QD
     Route: 048
     Dates: start: 201509
  21. BUDESONIDE [Concomitant]
     Active Substance: BUDESONIDE
     Dosage: 400 MICROGRAM, QD
     Route: 065
  22. BUDESONIDE [Concomitant]
     Active Substance: BUDESONIDE
     Dosage: 200 MICROGRAM, QD
     Route: 065
  23. DEXAMETHASONE [Concomitant]
     Active Substance: DEXAMETHASONE
     Dosage: BID FOR 3 DAYS AFTER EACH DOCETAXEL
     Route: 048
     Dates: start: 20150902, end: 20160106
  24. UNIROID [Concomitant]
     Dosage: UNK
     Route: 065
     Dates: start: 201603
  25. FILGRASTIM [Concomitant]
     Active Substance: FILGRASTIM
     Dosage: ONCE DAILY, FOR 7 DAYS AFTER DOCETEXAL
     Route: 058
     Dates: start: 20150904, end: 20160110
  26. IMODIUM [Concomitant]
     Active Substance: LOPERAMIDE HYDROCHLORIDE
     Dosage: 2 MILLIGRAM, 3XMONTHS
     Route: 048
     Dates: start: 201512, end: 201603
  27. IMODIUM [Concomitant]
     Active Substance: LOPERAMIDE HYDROCHLORIDE
     Dosage: 2 MILLIGRAM
     Route: 048
     Dates: start: 201512, end: 201603
  28. BUTYLSCOPOLAMINE BROMIDE [Concomitant]
     Active Substance: BUTYLSCOPOLAMINE BROMIDE
     Dosage: 10 MILLIGRAM, QD
     Route: 048
     Dates: start: 201601, end: 201601
  29. BUTYLSCOPOLAMINE BROMIDE [Concomitant]
     Active Substance: BUTYLSCOPOLAMINE BROMIDE
     Dosage: 10 MILLIGRAM
     Route: 048
     Dates: start: 201601, end: 201601
  30. CALCIUM CARBONATE\CHOLECALCIFEROL [Concomitant]
     Active Substance: CALCIUM CARBONATE\CHOLECALCIFEROL
     Indication: Prophylaxis
     Dosage: UNK
     Route: 065
  31. ALOE VERA LEAF [Concomitant]
     Active Substance: ALOE VERA LEAF
     Indication: Skin reaction
     Dosage: UNK
     Route: 061
     Dates: start: 20160601, end: 2016
  32. CALCIUM\CHOLECALCIFEROL [Concomitant]
     Active Substance: CALCIUM\CHOLECALCIFEROL
     Indication: Hypocalcaemia
     Dosage: UNK, QD
     Route: 048
     Dates: start: 20170208
  33. CHOLECALCIFEROL [Concomitant]
     Active Substance: CHOLECALCIFEROL
     Indication: Prophylaxis
     Dosage: UNK
     Route: 065
  34. DENOSUMAB [Concomitant]
     Active Substance: DENOSUMAB
     Indication: Metastases to bone
     Dosage: UNK
     Route: 065
  35. DOXYCYCLINE [Concomitant]
     Active Substance: DOXYCYCLINE
     Indication: Rash papular
     Dosage: UNK
     Route: 048
     Dates: start: 20170817, end: 201708
  36. HYDROCORTISONE [Concomitant]
     Active Substance: HYDROCORTISONE
     Indication: Rash papular
     Dosage: UNK
     Route: 061
     Dates: start: 20170817, end: 201708
  37. MUPIROCIN [Concomitant]
     Active Substance: MUPIROCIN
     Dosage: UNK, TID
     Route: 065
     Dates: start: 20150904, end: 20150909
  38. CHLORPHENIRAMINE MALEATE [Concomitant]
     Active Substance: CHLORPHENIRAMINE MALEATE
     Indication: Anal pruritus
     Dosage: UNK
     Route: 048
     Dates: start: 20170118
  39. DIBUCAINE HYDROCHLORIDE [Concomitant]
     Active Substance: DIBUCAINE HYDROCHLORIDE
     Dosage: UNK, BID (1 APPLICATION)
     Route: 061
     Dates: start: 201512

REACTIONS (5)
  - Lethargy [Not Recovered/Not Resolved]
  - Nausea [Recovered/Resolved]
  - Cellulitis [Recovered/Resolved]
  - Myalgia [Recovered/Resolved]
  - Neutrophil count decreased [Recovered/Resolved]

NARRATIVE: CASE EVENT DATE: 20160217
